FAERS Safety Report 4503006-7 (Version None)
Quarter: 2004Q4

REPORT INFORMATION
  Report Type: 
  Country: None (occurrence: None)
  Receive Date: 20041112
  Receipt Date: 20041101
  Transmission Date: 20050328
  Serious: Yes (Hospitalization)
  Sender: FDA-Public Use
  Company Number: 2004-10-1763

PATIENT
  Age: 45 Year
  Sex: Male
  Weight: 52 kg

DRUGS (7)
  1. CELESTAMINE TAB [Suspect]
     Indication: PRURITUS
     Dosage: SEE IMAGE
     Route: 048
     Dates: start: 20041007, end: 20041013
  2. CELESTAMINE TAB [Suspect]
     Indication: PRURITUS
     Dosage: SEE IMAGE
     Route: 048
     Dates: start: 20041014, end: 20041020
  3. CELESTAMINE TAB [Suspect]
     Indication: PRURITUS
     Dosage: SEE IMAGE
     Route: 048
     Dates: start: 20041007, end: 20041023
  4. CELESTAMINE TAB [Suspect]
     Indication: PRURITUS
     Dosage: SEE IMAGE
     Route: 048
     Dates: start: 20041021, end: 20041023
  5. CALCIUM CARBONATE [Concomitant]
  6. ROCALTROL [Concomitant]
  7. NU-LOTAN (LOSARTAN POTASSIUM) [Concomitant]

REACTIONS (4)
  - CONFUSIONAL STATE [None]
  - DELIRIUM [None]
  - HYPERKINESIA [None]
  - RESTLESSNESS [None]
